FAERS Safety Report 8835595 (Version 2)
Quarter: 2012Q4

REPORT INFORMATION
  Report Type: 
  Country: IE (occurrence: IE)
  Receive Date: 20121011
  Receipt Date: 20121130
  Transmission Date: 20130627
  Serious: Yes (Death)
  Sender: FDA-Public Use
  Company Number: IE-ACTELION-A-CH2012-72294

PATIENT
  Age: 10 Year
  Sex: Female

DRUGS (6)
  1. TRACLEER [Suspect]
     Indication: PRODUCT USED FOR UNKNOWN INDICATION
     Dosage: 62.5 mg, bid
     Route: 048
     Dates: start: 20060518, end: 201206
  2. LEVOTHYROXINE [Concomitant]
     Dosage: 100 mg, UNK
     Dates: start: 201107, end: 201206
  3. SILDENAFIL [Concomitant]
     Dosage: UNK
     Dates: start: 201107, end: 201206
  4. SALBUTAMOL [Concomitant]
     Dosage: UNK
     Route: 055
     Dates: start: 200708, end: 201206
  5. AUGMENTIN DUO [Concomitant]
     Dosage: UNK
     Dates: start: 200310
  6. ASPIRIN [Suspect]
     Dosage: UNK, od
     Dates: start: 201202, end: 201206

REACTIONS (1)
  - Death [Fatal]
